FAERS Safety Report 7777526-6 (Version None)
Quarter: 2011Q3

REPORT INFORMATION
  Report Type: 
  Country: None (occurrence: None)
  Receive Date: 20110926
  Receipt Date: 20110912
  Transmission Date: 20111222
  Serious: No
  Sender: FDA-Public Use
  Company Number: CA-ELI_LILLY_AND_COMPANY-CA201109002911

PATIENT
  Sex: Male

DRUGS (10)
  1. LYRICA [Concomitant]
  2. LIPITOR [Concomitant]
  3. CLONAZEPAM [Concomitant]
  4. SERTRALINE HYDROCHLORIDE [Concomitant]
  5. LORAZEPAM [Concomitant]
  6. CYMBALTA [Concomitant]
  7. VITAMIN B COMPLEX CAP [Concomitant]
  8. CIALIS [Concomitant]
  9. ZYPREXA [Suspect]
     Indication: BIPOLAR DISORDER
     Dosage: 2.5 MG, EACH EVENING
  10. EFFEXOR [Concomitant]

REACTIONS (7)
  - DIABETIC NEUROPATHY [None]
  - GLUCOSE TOLERANCE IMPAIRED [None]
  - TYPE 2 DIABETES MELLITUS [None]
  - SERUM FERRITIN INCREASED [None]
  - HAEMOCHROMATOSIS [None]
  - BLOOD TRIGLYCERIDES INCREASED [None]
  - RED BLOOD CELL COUNT DECREASED [None]
